FAERS Safety Report 4275032-7 (Version None)
Quarter: 2004Q1

REPORT INFORMATION
  Report Type: 
  Country: None (occurrence: None)
  Receive Date: 20040116
  Receipt Date: 20040108
  Transmission Date: 20041129
  Serious: Yes (Hospitalization, Other)
  Sender: FDA-Public Use
  Company Number: DE-JNJFOC-20040101385

PATIENT
  Age: 58 Year
  Sex: Female
  Weight: 72 kg

DRUGS (6)
  1. REMICADE [Suspect]
     Dosage: 300 MG, 1 IN 1 DAY, INTRAVENOUS
     Route: 042
     Dates: start: 20030324, end: 20030324
  2. PREDNISOLONE [Concomitant]
  3. METHOTREXATE [Concomitant]
  4. FOLIC ACID [Concomitant]
  5. CALCIUM SANDOZ FORTE (CALCIUM-SANDOZ FORTE) [Concomitant]
  6. ... [Concomitant]

REACTIONS (5)
  - DISEASE RECURRENCE [None]
  - GASTRITIS [None]
  - GENITAL DISORDER FEMALE [None]
  - INTERVERTEBRAL DISC PROTRUSION [None]
  - ORAL FUNGAL INFECTION [None]
